FAERS Safety Report 16842001 (Version 1)
Quarter: 2019Q3

REPORT INFORMATION
  Report Type: Spontaneous
  Country: US (occurrence: US)
  Receive Date: 20190923
  Receipt Date: 20190923
  Transmission Date: 20191005
  Serious: Yes (Other)
  Sender: FDA-Public Use
  Company Number: US-BEH-2019107080

PATIENT
  Age: 21 Year
  Sex: Female

DRUGS (3)
  1. BENADRYL [Concomitant]
     Active Substance: DIPHENHYDRAMINE HYDROCHLORIDE
     Indication: PREMEDICATION
  2. HIZENTRA [Suspect]
     Active Substance: HUMAN IMMUNOGLOBULIN G
     Dosage: UNK
     Route: 065
     Dates: start: 20190913
  3. BENADRYL [Concomitant]
     Active Substance: DIPHENHYDRAMINE HYDROCHLORIDE
     Indication: PREMEDICATION

REACTIONS (12)
  - Arthralgia [Unknown]
  - Nail discomfort [Unknown]
  - Chest pain [Unknown]
  - Headache [Unknown]
  - Muscle contractions involuntary [Unknown]
  - Vision blurred [Unknown]
  - Tachycardia [Unknown]
  - Injection site pruritus [Unknown]
  - Sensitive skin [Unknown]
  - Dyspnoea [Unknown]
  - Flushing [Unknown]
  - Neck pain [Unknown]

NARRATIVE: CASE EVENT DATE: 201909
